FAERS Safety Report 7742325-8 (Version None)
Quarter: 2011Q3

REPORT INFORMATION
  Report Type: 
  Country: None (occurrence: None)
  Receive Date: 20110912
  Receipt Date: 20110901
  Transmission Date: 20111222
  Serious: Yes (Life-Threatening)
  Sender: FDA-Public Use
  Company Number: GB-RANBAXY-2011R1-47345

PATIENT
  Age: 29 Year
  Sex: Female
  Weight: 85 kg

DRUGS (1)
  1. AMOXICILLIN AND CLAVULANATE POTASSIUM [Suspect]
     Indication: BETA HAEMOLYTIC STREPTOCOCCAL INFECTION
     Dosage: UNK
     Route: 042
     Dates: start: 20110722

REACTIONS (1)
  - ANAPHYLACTIC REACTION [None]
